FAERS Safety Report 7476695-5 (Version None)
Quarter: 2011Q2

REPORT INFORMATION
  Report Type: 
  Country: None (occurrence: None)
  Receive Date: 20110512
  Receipt Date: 20110504
  Transmission Date: 20111010
  Serious: Yes (Hospitalization)
  Sender: FDA-Public Use
  Company Number: NL-GILEAD-2011-0038685

PATIENT
  Sex: Female
  Weight: 59 kg

DRUGS (9)
  1. VALPROATE SODIUM [Suspect]
     Indication: BIPOLAR DISORDER
     Dates: start: 20110214, end: 20110316
  2. NORVIR [Suspect]
     Indication: HIV INFECTION
     Dates: start: 20110314, end: 20110316
  3. REYATAZ [Suspect]
     Indication: HIV INFECTION
     Dates: start: 20110314, end: 20110316
  4. TEMAZ [Concomitant]
     Dates: start: 20110204
  5. TRUVADA [Suspect]
     Indication: HIV INFECTION
     Dates: start: 20110314, end: 20110316
  6. OXAZEPAM [Concomitant]
     Dates: start: 20110204
  7. CALCI CHEW [Concomitant]
     Dates: start: 20110204
  8. CISORDINOL [Concomitant]
     Dates: start: 20110228, end: 20110316
  9. CLEMASTINE FUMARATE [Suspect]
     Indication: RASH
     Dates: start: 20110313, end: 20110316

REACTIONS (1)
  - DRUG RASH WITH EOSINOPHILIA AND SYSTEMIC SYMPTOMS [None]
